FAERS Safety Report 14330072 (Version 1)
Quarter: 2017Q4

REPORT INFORMATION
  Report Type: Spontaneous
  Country: DE (occurrence: DE)
  Receive Date: 20171227
  Receipt Date: 20171227
  Transmission Date: 20180321
  Serious: Yes (Life-Threatening, Other)
  Sender: FDA-Public Use
  Company Number: DE-MYLANLABS-2017M1082193

PATIENT
  Age: 67 Year
  Sex: Female

DRUGS (1)
  1. FENTANYL. [Suspect]
     Active Substance: FENTANYL
     Indication: PAIN
     Dosage: 12 MG, QH
     Route: 062

REACTIONS (5)
  - Dysarthria [Unknown]
  - Confusional state [Unknown]
  - Acute kidney injury [Unknown]
  - Muscle spasms [Unknown]
  - Pain in extremity [Unknown]
